FAERS Safety Report 17276508 (Version 1)
Quarter: 2020Q1

REPORT INFORMATION
  Report Type: Spontaneous
  Country: US (occurrence: US)
  Receive Date: 20191226
  Receipt Date: 20191226
  Transmission Date: 20200409
  Serious: No
  Sender: FDA-Public Use
  Company Number: None

PATIENT
  Age: 86 Year
  Sex: Female

DRUGS (13)
  1. BICALUTAMIDE. [Concomitant]
     Active Substance: BICALUTAMIDE
  2. METOLAZONE. [Concomitant]
     Active Substance: METOLAZONE
  3. BISOPROL [Concomitant]
     Active Substance: BISOPROLOL FUMARATE
  4. AMIODARONE [Concomitant]
     Active Substance: AMIODARONE
  5. TERAZOSIN [Concomitant]
     Active Substance: TERAZOSIN HYDROCHLORIDE
  6. TRIAMT/HOTZ [Concomitant]
  7. PROCHLORPER [Concomitant]
  8. ZYTIGA [Suspect]
     Active Substance: ABIRATERONE ACETATE
     Indication: PROSTATE CANCER
     Route: 048
     Dates: start: 20191205
  9. ELIQUIS [Concomitant]
     Active Substance: APIXABAN
  10. METOPROLOL TARTRATE. [Concomitant]
     Active Substance: METOPROLOL TARTRATE
  11. PREDNISONE. [Concomitant]
     Active Substance: PREDNISONE
  12. CHLORHEX GLU [Concomitant]
  13. FUROSEMIDE. [Concomitant]
     Active Substance: FUROSEMIDE

REACTIONS (2)
  - Arthralgia [None]
  - Nausea [None]

NARRATIVE: CASE EVENT DATE: 201912
